FAERS Safety Report 8402949-1 (Version None)
Quarter: 2012Q2

REPORT INFORMATION
  Report Type: 
  Country: None (occurrence: None)
  Receive Date: 20120601
  Receipt Date: 20120316
  Transmission Date: 20120825
  Serious: Yes (Hospitalization)
  Sender: FDA-Public Use
  Company Number: JP-GLAXOSMITHKLINE-B0789933A

PATIENT
  Sex: Female

DRUGS (10)
  1. LAMICTAL [Suspect]
     Indication: PRODUCT USED FOR UNKNOWN INDICATION
     Dosage: 25MG PER DAY
     Route: 048
     Dates: start: 20120215, end: 20120312
  2. DOXAZOSIN MESYLATE [Concomitant]
     Dosage: 8MG PER DAY
     Route: 048
     Dates: start: 20120118
  3. CALBLOCK [Concomitant]
     Dosage: 32MG PER DAY
     Route: 048
     Dates: start: 20120201
  4. CARVEDILOL [Concomitant]
     Dosage: 20MG PER DAY
     Route: 048
     Dates: start: 20120127
  5. ADOFEED [Concomitant]
     Route: 061
     Dates: start: 20120220
  6. BETAMETHASONE SODIUM PHOSPHATE [Concomitant]
     Route: 061
     Dates: start: 20120315
  7. TANATRIL [Concomitant]
     Dosage: 20MG PER DAY
     Route: 048
     Dates: start: 20120118
  8. LOXONIN [Concomitant]
     Route: 061
     Dates: start: 20120203
  9. LOXONIN [Concomitant]
     Route: 061
     Dates: start: 20120315
  10. PRADAXA [Concomitant]
     Dosage: 600MG PER DAY
     Route: 048
     Dates: start: 20120118

REACTIONS (2)
  - RASH [None]
  - BODY TEMPERATURE DECREASED [None]
